FAERS Safety Report 14921655 (Version 1)
Quarter: 2018Q2

REPORT INFORMATION
  Report Type: Spontaneous
  Country: FR (occurrence: FR)
  Receive Date: 20180522
  Receipt Date: 20180522
  Transmission Date: 20180711
  Serious: Yes (Other)
  Sender: FDA-Public Use
  Company Number: FR-MERCK KGAA-2048194

PATIENT
  Age: 44 Year
  Sex: Female

DRUGS (1)
  1. NOVOTHYROX [Suspect]
     Active Substance: LEVOTHYROXINE SODIUM
     Indication: PRODUCT USED FOR UNKNOWN INDICATION

REACTIONS (21)
  - Anxiety [None]
  - Asthenia [None]
  - Fatigue [None]
  - Mood swings [None]
  - Nervousness [None]
  - Suicidal ideation [None]
  - Stress [None]
  - Dry skin [None]
  - Cystitis [None]
  - Muscle spasms [None]
  - Impatience [None]
  - Alopecia [None]
  - Headache [None]
  - Postmenopausal haemorrhage [None]
  - Movement disorder [None]
  - Psoriasis [None]
  - Obesity [None]
  - Pain in extremity [None]
  - Memory impairment [None]
  - Affect lability [None]
  - Social avoidant behaviour [None]

NARRATIVE: CASE EVENT DATE: 2017
